FAERS Safety Report 12288241 (Version 1)
Quarter: 2016Q2

REPORT INFORMATION
  Report Type: Spontaneous
  Country: US (occurrence: US)
  Receive Date: 20160420
  Receipt Date: 20160420
  Transmission Date: 20160815
  Serious: Yes (Disabling)
  Sender: FDA-Public Use
  Company Number: US-SA-2016SA074836

PATIENT
  Age: 68 Year
  Sex: Female

DRUGS (2)
  1. LANTUS SOLOSTAR [Suspect]
     Active Substance: INSULIN GLARGINE
     Indication: TYPE 2 DIABETES MELLITUS
     Dosage: T BEDTIME DOSE:22 UNIT(S)
     Route: 065
     Dates: start: 2000
  2. SOLOSTAR [Concomitant]
     Active Substance: DEVICE
     Dates: start: 2000

REACTIONS (2)
  - Intentional product misuse [Unknown]
  - Cerebrovascular accident [Unknown]
